FAERS Safety Report 15474056 (Version 1)
Quarter: 2018Q4

REPORT INFORMATION
  Report Type: Spontaneous
  Country: JP (occurrence: JP)
  Receive Date: 20181008
  Receipt Date: 20181008
  Transmission Date: 20190205
  Serious: Yes (Other)
  Sender: FDA-Public Use
  Company Number: JP-PFIZER INC-2018402488

PATIENT
  Sex: Male

DRUGS (2)
  1. SOMATROPIN. [Suspect]
     Active Substance: SOMATROPIN
     Dosage: UNK
  2. SOMATROPIN. [Suspect]
     Active Substance: SOMATROPIN
     Dosage: 0.40 MG/KG, WEEKLY

REACTIONS (4)
  - Precocious puberty [Unknown]
  - Epiphyses premature fusion [Unknown]
  - Blood follicle stimulating hormone increased [Unknown]
  - Therapeutic response decreased [Unknown]
